FAERS Safety Report 18684961 (Version 1)
Quarter: 2020Q4

REPORT INFORMATION
  Report Type: Spontaneous
  Country: US (occurrence: US)
  Receive Date: 20201230
  Receipt Date: 20201230
  Transmission Date: 20210114
  Serious: Yes (Other)
  Sender: FDA-Public Use
  Company Number: US-BAYER-2020-284820

PATIENT
  Age: 74 Year
  Sex: Female

DRUGS (5)
  1. STATIN [NYSTATIN] [Concomitant]
     Active Substance: NYSTATIN
     Indication: BLOOD CHOLESTEROL ABNORMAL
     Dosage: UNK
  2. ATORVASTATIN CALCIUM. [Concomitant]
     Active Substance: ATORVASTATIN CALCIUM
     Indication: THYROID DISORDER
  3. MIRALAX [Suspect]
     Active Substance: POLYETHYLENE GLYCOL 3350
     Indication: GASTROINTESTINAL DISORDER
     Dosage: 2 DF, QD
     Route: 048
     Dates: start: 20200702
  4. IBUPROFEN. [Concomitant]
     Active Substance: IBUPROFEN
     Indication: PAIN
     Dosage: 600 MG, TID
  5. METAMUCIL THERAPY FOR REGULARITY [Suspect]
     Active Substance: PSYLLIUM HUSK
     Dosage: UNK

REACTIONS (4)
  - Incorrect dose administered [Unknown]
  - Drug dependence [Unknown]
  - Abdominal distension [None]
  - Incorrect product administration duration [Unknown]

NARRATIVE: CASE EVENT DATE: 2020
